FAERS Safety Report 13197338 (Version 1)
Quarter: 2017Q1

REPORT INFORMATION
  Report Type: Spontaneous
  Country: US (occurrence: US)
  Receive Date: 20170207
  Receipt Date: 20170207
  Transmission Date: 20170428
  Serious: No
  Sender: FDA-Public Use
  Company Number: None

PATIENT
  Age: 65 Year
  Sex: Female

DRUGS (1)
  1. HUMIRA [Suspect]
     Active Substance: ADALIMUMAB
     Indication: MALAISE
     Dosage: 40MG EVERY 2 WEEKS
     Route: 058
     Dates: start: 20161017, end: 20170201

REACTIONS (2)
  - Lung disorder [None]
  - Sinus disorder [None]

NARRATIVE: CASE EVENT DATE: 20170201
